FAERS Safety Report 10051915 (Version 1)
Quarter: 2014Q2

REPORT INFORMATION
  Report Type: Spontaneous
  Country: TR (occurrence: TR)
  Receive Date: 20140402
  Receipt Date: 20140402
  Transmission Date: 20141212
  Serious: Yes (Hospitalization)
  Sender: FDA-Public Use
  Company Number: TR-BIOGENIDEC-2014BI029753

PATIENT
  Age: 44 Year
  Sex: 0

DRUGS (1)
  1. AVONEX [Suspect]
     Indication: MULTIPLE SCLEROSIS
     Route: 058

REACTIONS (3)
  - Septal panniculitis [Recovered/Resolved with Sequelae]
  - Incorrect route of drug administration [Recovered/Resolved with Sequelae]
  - Drug administered at inappropriate site [Recovered/Resolved with Sequelae]
